FAERS Safety Report 23232147 (Version 1)
Quarter: 2023Q4

REPORT INFORMATION
  Report Type: Spontaneous
  Country: GB (occurrence: GB)
  Receive Date: 20231127
  Receipt Date: 20231127
  Transmission Date: 20240109
  Serious: Yes (Hospitalization, Disabling, Other)
  Sender: FDA-Public Use
  Company Number: GB-AstraZeneca-2022A049656

PATIENT
  Age: 45 Year
  Sex: Male
  Weight: 93 kg

DRUGS (6)
  1. HUMAN IMMUNOGLOBULIN G [Suspect]
     Active Substance: HUMAN IMMUNOGLOBULIN G
     Indication: Product used for unknown indication
     Route: 065
  2. ASTRAZENECA COVID-19 VACCINE [Suspect]
     Active Substance: AZD-1222
     Indication: Product used for unknown indication
     Dosage: DOSE UNKNOWN
     Route: 042
     Dates: start: 20210317
  3. AMITRIPTYLINE [Concomitant]
     Active Substance: AMITRIPTYLINE
  4. CODEINE [Concomitant]
     Active Substance: CODEINE
  5. MORPHINE [Concomitant]
     Active Substance: MORPHINE
  6. PREGABALIN [Concomitant]
     Active Substance: PREGABALIN

REACTIONS (2)
  - Guillain-Barre syndrome [Not Recovered/Not Resolved]
  - Chronic inflammatory demyelinating polyradiculoneuropathy [Not Recovered/Not Resolved]

NARRATIVE: CASE EVENT DATE: 20210324
